FAERS Safety Report 8418222 (Version 4)
Quarter: 2012Q4

REPORT INFORMATION
  Report Type: 
  Country: US (occurrence: US)
  Receive Date: 20120221
  Receipt Date: 20120919
  Transmission Date: 20130627
  Serious: Yes (Other)
  Sender: FDA-Public Use
  Company Number: US-PFIZER INC-2012041919

PATIENT
  Age: 59 Year
  Sex: Female
  Weight: 59 kg

DRUGS (3)
  1. CHANTIX [Suspect]
     Indication: SMOKING CESSATION THERAPY
     Dosage: 0.5 mg, 1x/day
     Route: 048
     Dates: start: 201202, end: 2012
  2. CHANTIX [Suspect]
     Dosage: UNK; twice a day
     Route: 048
     Dates: start: 2012, end: 20120215
  3. CHANTIX [Suspect]
     Dosage: UNK
     Dates: start: 201201, end: 2012

REACTIONS (4)
  - Panic attack [Recovered/Resolved]
  - Dyspnoea [Recovered/Resolved]
  - Nervousness [Unknown]
  - Tobacco user [Unknown]
